FAERS Safety Report 22392484 (Version 2)
Quarter: 2023Q2

REPORT INFORMATION
  Report Type: Spontaneous
  Country: US (occurrence: US)
  Receive Date: 20230601
  Receipt Date: 20230627
  Transmission Date: 20230721
  Serious: No
  Sender: FDA-Public Use
  Company Number: US-SA-SAC20230530000598

PATIENT
  Age: 3 Year
  Sex: Male

DRUGS (2)
  1. ALPROLIX [Suspect]
     Active Substance: EFTRENONACOG ALFA
     Dosage: 750 IU
     Route: 042
  2. ALPROLIX [Suspect]
     Active Substance: EFTRENONACOG ALFA
     Dosage: 750 IU
     Route: 042

REACTIONS (6)
  - Ear infection [Unknown]
  - Pyrexia [Recovered/Resolved]
  - Ear congestion [Unknown]
  - Viral infection [Recovering/Resolving]
  - Fatigue [Recovering/Resolving]
  - Pyrexia [Recovered/Resolved]

NARRATIVE: CASE EVENT DATE: 20230522
